FAERS Safety Report 17591046 (Version 1)
Quarter: 2020Q1

REPORT INFORMATION
  Report Type: Spontaneous
  Country: US (occurrence: US)
  Receive Date: 20200325
  Receipt Date: 20200325
  Transmission Date: 20200409
  Serious: Yes (Hospitalization)
  Sender: FDA-Public Use
  Company Number: None

PATIENT
  Age: 83 Year
  Sex: Male
  Weight: 88.45 kg

DRUGS (2)
  1. WARFARIN (WARFARIN NA (EXELAN) 1MG TAB [Suspect]
     Active Substance: WARFARIN
     Indication: AORTIC VALVE REPLACEMENT
     Dates: start: 20020415, end: 20020505
  2. WARFARIN (WARFARIN NA (EXELAN) 1MG TAB [Suspect]
     Active Substance: WARFARIN
     Indication: CARDIAC VALVE PROSTHESIS USER
     Dates: start: 20020415, end: 20020505

REACTIONS (2)
  - Gastrointestinal haemorrhage [None]
  - Anticoagulation drug level below therapeutic [None]

NARRATIVE: CASE EVENT DATE: 20180505
